FAERS Safety Report 4752566-X (Version None)
Quarter: 2005Q3

REPORT INFORMATION
  Report Type: 
  Country: None (occurrence: None)
  Receive Date: 20050823
  Receipt Date: 20050819
  Transmission Date: 20060218
  Serious: Yes (Hospitalization, Other)
  Sender: FDA-Public Use
  Company Number: 215619

PATIENT
  Age: 56 Year
  Sex: Male

DRUGS (1)
  1. EFALIZUMAB (EFALIZUMAB) PWDR + SOLVENT, INJECTION SOLN, 125 MG [Suspect]
     Indication: PSORIASIS
     Dosage: 1 MG/KG, 1/WEEK, SUBCUTANEOUS
     Route: 058
     Dates: start: 20050404, end: 20050527

REACTIONS (3)
  - ABDOMINAL PAIN [None]
  - BACK PAIN [None]
  - MENINGITIS VIRAL [None]
